FAERS Safety Report 9909700 (Version 1)
Quarter: 2014Q1

REPORT INFORMATION
  Report Type: Spontaneous
  Country: US (occurrence: None)
  Receive Date: 20140218
  Receipt Date: 20140218
  Transmission Date: 20141002
  Serious: No
  Sender: FDA-Public Use
  Company Number: None

PATIENT
  Age: 31 Year
  Sex: Female
  Weight: 63.5 kg

DRUGS (1)
  1. SULFAMETHOXAZOL/TRIMETHOPRIM [Suspect]
     Indication: URINARY TRACT INFECTION
     Dates: start: 20131207, end: 20131210

REACTIONS (5)
  - Nausea [None]
  - Asthenia [None]
  - Hunger [None]
  - Vomiting [None]
  - Dry mouth [None]
